FAERS Safety Report 5909845-X (Version None)
Quarter: 2008Q4

REPORT INFORMATION
  Report Type: 
  Country: None (occurrence: None)
  Receive Date: 20081004
  Receipt Date: 20081004
  Transmission Date: 20090506
  Serious: Yes (Life-Threatening, Hospitalization)
  Sender: FDA-Public Use
  Company Number: None

PATIENT

DRUGS (1)
  1. ABILIFY [Suspect]

REACTIONS (1)
  - SUICIDE ATTEMPT [None]
